FAERS Safety Report 8344742-4 (Version None)
Quarter: 2012Q2

REPORT INFORMATION
  Report Type: 
  Country: None (occurrence: None)
  Receive Date: 20120508
  Receipt Date: 20120426
  Transmission Date: 20120825
  Serious: Yes (Hospitalization)
  Sender: FDA-Public Use
  Company Number: FR-ROCHE-1066416

PATIENT
  Sex: Female
  Weight: 60 kg

DRUGS (5)
  1. PEGASYS [Suspect]
     Indication: HEPATITIS C
     Dosage: LAST DOSE ON 7 SEP 2011
     Dates: start: 20110505, end: 20110907
  2. ALISPORIVIR [Suspect]
     Indication: HEPATITIS C
     Dosage: LAST DOSE ON 7 SEP 2011
     Route: 048
     Dates: start: 20110324, end: 20110908
  3. ACETYLSALICYLIC ACID SRT [Concomitant]
     Dates: start: 20110407, end: 20110407
  4. COPEGUS [Suspect]
     Indication: HEPATITIS C
     Dosage: LAST DOSE ON 7 SEP 2011
     Dates: start: 20110324, end: 20110907
  5. LANSOPRAZOLE [Concomitant]
     Dates: start: 20110420

REACTIONS (1)
  - ERYTHEMA NODOSUM [None]
